FAERS Safety Report 11999006 (Version 1)
Quarter: 2016Q1

REPORT INFORMATION
  Report Type: Spontaneous
  Country: US (occurrence: None)
  Receive Date: 20160202
  Receipt Date: 20160202
  Transmission Date: 20160526
  Serious: No
  Sender: FDA-Public Use
  Company Number: None

PATIENT
  Age: 58 Year
  Sex: Female
  Weight: 72.58 kg

DRUGS (1)
  1. VANCOMYCIN 1GM MYLAN [Suspect]
     Active Substance: VANCOMYCIN
     Indication: ABDOMINAL WALL ABSCESS
     Route: 042
     Dates: start: 20160129, end: 20160129

REACTIONS (3)
  - Rash generalised [None]
  - Erythema [None]
  - Pruritus [None]

NARRATIVE: CASE EVENT DATE: 20160129
